FAERS Safety Report 16767170 (Version 2)
Quarter: 2019Q3

REPORT INFORMATION
  Report Type: Spontaneous
  Country: US (occurrence: US)
  Receive Date: 20190903
  Receipt Date: 20190905
  Transmission Date: 20191005
  Serious: No
  Sender: FDA-Public Use
  Company Number: US-PFIZER INC-2016258453

PATIENT
  Age: 67 Year
  Sex: Male
  Weight: 109.8 kg

DRUGS (4)
  1. BACLOFEN. [Concomitant]
     Active Substance: BACLOFEN
     Indication: TREMOR
     Dosage: 20 MG, 4X/DAY
  2. LYRICA [Suspect]
     Active Substance: PREGABALIN
     Indication: PAIN
     Dosage: 150 MG, 3X/DAY (ONE PILL THREE TIMES A DAY)
     Route: 048
  3. LYRICA [Suspect]
     Active Substance: PREGABALIN
     Indication: MYELITIS
     Dosage: 100 MG, 3X/DAY
  4. METHADONE [Concomitant]
     Active Substance: METHADONE HYDROCHLORIDE
     Indication: PAIN
     Dosage: 10 MG, 3X/DAY

REACTIONS (1)
  - Inappropriate schedule of product administration [Unknown]
